FAERS Safety Report 14859853 (Version 1)
Quarter: 2018Q2

REPORT INFORMATION
  Report Type: Spontaneous
  Country: DE (occurrence: DE)
  Receive Date: 20180508
  Receipt Date: 20180508
  Transmission Date: 20180711
  Serious: Yes (Other)
  Sender: FDA-Public Use
  Company Number: DE-ASPEN-GLO2018DE004215

PATIENT
  Sex: Male

DRUGS (2)
  1. ORGARAN [Suspect]
     Active Substance: DANAPAROID SODIUM
     Indication: HAEMODIALYSIS
     Dosage: UNK
     Route: 065
  2. ORGARAN [Suspect]
     Active Substance: DANAPAROID SODIUM
     Indication: HEPARIN-INDUCED THROMBOCYTOPENIA

REACTIONS (3)
  - Underdose [Unknown]
  - Drug effect incomplete [Unknown]
  - Haemorrhage [Not Recovered/Not Resolved]
